FAERS Safety Report 12152725 (Version 1)
Quarter: 2016Q1

REPORT INFORMATION
  Report Type: Spontaneous
  Country: FR (occurrence: FR)
  Receive Date: 20160304
  Receipt Date: 20160304
  Transmission Date: 20160526
  Serious: Yes (Hospitalization)
  Sender: FDA-Public Use
  Company Number: FR-ASTRAZENECA-2016SE22197

PATIENT
  Age: 64 Year
  Sex: Female

DRUGS (11)
  1. PHYSIOTENS [Suspect]
     Active Substance: MOXONIDINE
     Indication: HYPERTENSION
     Route: 048
     Dates: end: 20160205
  2. RASILEZ [Suspect]
     Active Substance: ALISKIREN
     Indication: HYPERTENSION
     Route: 048
     Dates: end: 20160205
  3. WYTENS [Suspect]
     Active Substance: GUANABENZ ACETATE
     Indication: HYPERTENSION
     Dosage: 10 MG + 6.25 MG DAILY
     Route: 048
     Dates: end: 20160205
  4. APIDRA [Concomitant]
     Active Substance: INSULIN GLULISINE
  5. GLUCOPHAGE [Suspect]
     Active Substance: METFORMIN HYDROCHLORIDE
     Indication: TYPE 2 DIABETES MELLITUS
     Route: 048
     Dates: end: 20160205
  6. CRESTOR [Suspect]
     Active Substance: ROSUVASTATIN CALCIUM
     Indication: DYSLIPIDAEMIA
     Route: 048
     Dates: end: 20160205
  7. DIAMICRON [Suspect]
     Active Substance: GLICLAZIDE
     Indication: TYPE 2 DIABETES MELLITUS
     Route: 048
     Dates: end: 20160205
  8. LANTUS [Concomitant]
     Active Substance: INSULIN GLARGINE
  9. KARDEGIC [Concomitant]
     Active Substance: ASPIRIN LYSINE
  10. VICTOZA [Suspect]
     Active Substance: LIRAGLUTIDE
     Indication: TYPE 2 DIABETES MELLITUS
     Route: 058
     Dates: start: 20160123, end: 20160205
  11. LEVOTHYROX [Concomitant]
     Active Substance: LEVOTHYROXINE

REACTIONS (2)
  - Acute kidney injury [Recovered/Resolved]
  - Pancreatitis [Recovered/Resolved]

NARRATIVE: CASE EVENT DATE: 20160204
